FAERS Safety Report 8097263-0 (Version None)
Quarter: 2012Q1

REPORT INFORMATION
  Report Type: 
  Country: None (occurrence: None)
  Receive Date: 20120128
  Receipt Date: 20110629
  Transmission Date: 20120608
  Serious: No
  Sender: FDA-Public Use
  Company Number: US-ABBOTT-11P-163-0835083-00

PATIENT
  Sex: Male

DRUGS (7)
  1. HYDROCODONE BITARTRATE [Concomitant]
     Indication: PAIN
  2. TAMSULOSIN HCL [Concomitant]
     Indication: PROSTATOMEGALY
  3. AVODART [Concomitant]
     Indication: PROSTATOMEGALY
  4. VALIUM [Concomitant]
     Indication: ANXIETY
  5. HUMIRA [Suspect]
     Indication: RHEUMATOID ARTHRITIS
     Route: 058
     Dates: start: 20080101, end: 20110401
  6. HUMIRA [Suspect]
     Indication: OSTEOARTHRITIS
  7. HUMIRA [Suspect]
     Indication: PSORIATIC ARTHROPATHY
     Route: 058
     Dates: start: 20110610

REACTIONS (4)
  - PAIN OF SKIN [None]
  - HYPERAESTHESIA [None]
  - HERPES ZOSTER [None]
  - BLISTER [None]
